FAERS Safety Report 9373557 (Version 1)
Quarter: 2013Q2

REPORT INFORMATION
  Report Type: Spontaneous
  Country: FR (occurrence: FR)
  Receive Date: 20130627
  Receipt Date: 20130627
  Transmission Date: 20140414
  Serious: Yes (Hospitalization, Other)
  Sender: FDA-Public Use
  Company Number: FR-GILEAD-2013-0077065

PATIENT
  Age: 50 Year
  Sex: Male

DRUGS (3)
  1. VIREAD [Suspect]
     Indication: CHRONIC HEPATITIS B
     Dosage: UNK
     Dates: start: 2009
  2. TRAMADOL [Concomitant]
     Indication: BACK PAIN
     Dosage: UNK
     Route: 048
  3. PARACETAMOL [Concomitant]

REACTIONS (3)
  - Nephrotic syndrome [Not Recovered/Not Resolved]
  - Laboratory test abnormal [Not Recovered/Not Resolved]
  - Proteinuria [Not Recovered/Not Resolved]
